FAERS Safety Report 12467992 (Version 6)
Quarter: 2017Q1

REPORT INFORMATION
  Report Type: Spontaneous
  Country: US (occurrence: US)
  Receive Date: 20160615
  Receipt Date: 20170302
  Transmission Date: 20170428
  Serious: No
  Sender: FDA-Public Use
  Company Number: US-PFIZER INC-2016285872

PATIENT
  Age: 58 Year
  Sex: Male
  Weight: 77.11 kg

DRUGS (15)
  1. PROCTOSOL-HC [Concomitant]
     Active Substance: HYDROCORTISONE
     Indication: PAIN
     Dosage: UNK UNK, AS NEEDED (3 TIMES A DAY)
     Route: 054
  2. CYCLOBENZAPRINE [Concomitant]
     Active Substance: CYCLOBENZAPRINE
     Dosage: 10 MG, 3X/DAY
  3. ASPIRIN. [Concomitant]
     Active Substance: ASPIRIN
     Indication: PAIN
  4. TRAMADOL HCL [Concomitant]
     Active Substance: TRAMADOL HYDROCHLORIDE
     Indication: PAIN
     Dosage: 50 MG, AS NEEDED (EVERY SIX HOURS)
     Route: 048
  5. METHYLPREDNISOLONE. [Concomitant]
     Active Substance: METHYLPREDNISOLONE
     Dosage: UNK, (TAKE AS DIRECTED ON PACKAGE)
  6. GABAPENTIN. [Concomitant]
     Active Substance: GABAPENTIN
     Dosage: 300 MG, 1X/DAY (AT BEDTIME FOR 1 WEEK)
     Route: 048
  7. RECTIV [Concomitant]
     Active Substance: NITROGLYCERIN
     Dosage: UNK UNK, 2X/DAY (APPLY 0.2 INCHES INTRA-ANALLY)
  8. GABAPENTIN. [Concomitant]
     Active Substance: GABAPENTIN
     Dosage: 300 MG, UNK (TAKE 1 CAPSULE 2)
     Route: 048
  9. LYRICA [Suspect]
     Active Substance: PREGABALIN
     Dosage: 50 MG, 2X/DAY
     Route: 048
     Dates: start: 20160525, end: 20160602
  10. SMZ/TMP DS [Concomitant]
     Active Substance: SULFAMETHOXAZOLE\TRIMETHOPRIM
     Dosage: 1 DF, 2X/DAY [(SULFAMETHOXAZOLE: 800), (TRIMETHOPRIM: 160)]
     Route: 048
  11. PEG 3350 + ELECTROLYTES [Concomitant]
     Dosage: 3.785 ML, UNK (1 TIME FOR 1 DOSE DRINK 1/2 GALLON AT 5 PM THE DA)
     Route: 048
  12. LYRICA [Suspect]
     Active Substance: PREGABALIN
     Indication: PROCTALGIA
     Dosage: 25 MG, 2X/DAY
     Route: 048
     Dates: start: 20160520
  13. ASPIRIN. [Concomitant]
     Active Substance: ASPIRIN
     Indication: HEADACHE
     Dosage: 350 MG,A COUPLE TIMES A DAY
  14. TOBRAMYCIN AND DEXAMETHASONE [Concomitant]
     Active Substance: DEXAMETHASONE\TOBRAMYCIN
     Dosage: 1 DF, 4X/DAY (PLACE 1 DROP INTO THE RIGHT EYE 4 TIMES A DAY FOR 7 DAYS)
  15. PENICILLIN VK [Concomitant]
     Active Substance: PENICILLIN V POTASSIUM
     Dosage: 500 MG, 4X/DAY
     Route: 048

REACTIONS (24)
  - Drug ineffective for unapproved indication [Unknown]
  - Arthropathy [Not Recovered/Not Resolved]
  - Head discomfort [Unknown]
  - Dizziness [Unknown]
  - Arthralgia [Unknown]
  - Feeling jittery [Not Recovered/Not Resolved]
  - Confusional state [Unknown]
  - Mood altered [Unknown]
  - Heart rate increased [Unknown]
  - Sedation [Not Recovered/Not Resolved]
  - Fatigue [Not Recovered/Not Resolved]
  - Joint swelling [Not Recovered/Not Resolved]
  - Agitation [Not Recovered/Not Resolved]
  - Arthritis [Unknown]
  - Feeling abnormal [Unknown]
  - Feeling hot [Not Recovered/Not Resolved]
  - Dysarthria [Not Recovered/Not Resolved]
  - Impaired driving ability [Unknown]
  - Feeling drunk [Unknown]
  - Condition aggravated [Not Recovered/Not Resolved]
  - Peripheral swelling [Unknown]
  - Irritability [Unknown]
  - Activities of daily living impaired [Unknown]
  - Product use issue [Unknown]

NARRATIVE: CASE EVENT DATE: 20160601
